FAERS Safety Report 4900370-1 (Version None)
Quarter: 2006Q1

REPORT INFORMATION
  Report Type: 
  Country: None (occurrence: None)
  Receive Date: 20060203
  Receipt Date: 20060118
  Transmission Date: 20060701
  Serious: Yes (Other)
  Sender: FDA-Public Use
  Company Number: PHBS2006BR01169

PATIENT
  Age: 17 Year
  Sex: Male
  Weight: 53 kg

DRUGS (1)
  1. TRILEPTAL [Suspect]
     Indication: ELECTROENCEPHALOGRAM ABNORMAL
     Dosage: 1 DF, QHS
     Route: 048
     Dates: start: 20050101

REACTIONS (7)
  - ABDOMINAL PAIN UPPER [None]
  - BREATH ODOUR [None]
  - GINGIVAL BLEEDING [None]
  - GINGIVAL INFECTION [None]
  - GINGIVAL PAIN [None]
  - GINGIVITIS [None]
  - VOMITING [None]
